FAERS Safety Report 13164671 (Version 1)
Quarter: 2017Q1

REPORT INFORMATION
  Report Type: Spontaneous
  Country: AT (occurrence: AT)
  Receive Date: 20170130
  Receipt Date: 20170130
  Transmission Date: 20170428
  Serious: Yes (Hospitalization, Other)
  Sender: FDA-Public Use
  Company Number: AT-MYLANLABS-2017M1004464

PATIENT

DRUGS (6)
  1. OXALIPLATIN. [Suspect]
     Active Substance: OXALIPLATIN
     Indication: RECTOSIGMOID CANCER
     Dosage: 85 MG/M2 OVER 2 H (FOLFOX CHEMOTHERAPY)
     Route: 065
  2. FLUOROURACIL. [Suspect]
     Active Substance: FLUOROURACIL
     Dosage: 400 MG/KG THROUGH A PUMP OVER 22 H (FOLFOX CHEMOTHERAPY)
     Route: 065
  3. FLUOROURACIL. [Suspect]
     Active Substance: FLUOROURACIL
     Indication: RECTOSIGMOID CANCER
     Dosage: 200 MG/M2 (FOLFOX CHEMOTHERAPY)
     Route: 050
  4. PANITUMUMAB [Suspect]
     Active Substance: PANITUMUMAB
     Indication: RECTOSIGMOID CANCER
     Dosage: 6 MG/KG OVER 60 MIN
     Route: 013
  5. SODIUM CHLORIDE. [Concomitant]
     Active Substance: SODIUM CHLORIDE
     Indication: PRODUCT USED FOR UNKNOWN INDICATION
     Dosage: INFUSION LINE WAS FLUSHED AND PANITUMUMAB WAS DILUTED IN 100ML OF SODIUM CHLORIDE
     Route: 065
  6. FOLINIC ACID [Suspect]
     Active Substance: LEUCOVORIN
     Indication: RECTOSIGMOID CANCER
     Dosage: 200 MG/M2 (FOLFOX CHEMOTHERAPY)
     Route: 065

REACTIONS (3)
  - Coma [Recovered/Resolved]
  - Encephalopathy [Recovering/Resolving]
  - Incorrect route of drug administration [Recovering/Resolving]
